FAERS Safety Report 21102240 (Version 1)
Quarter: 2022Q3

REPORT INFORMATION
  Report Type: 
  Country: US (occurrence: US)
  Receive Date: 20220719
  Receipt Date: 20220719
  Transmission Date: 20221027
  Serious: Yes (Other)
  Sender: FDA-Public Use
  Company Number: US-C B Fleet Co Inc-202207-US-002150

PATIENT
  Age: 49 Year
  Sex: Female

DRUGS (2)
  1. BC ARTHRITIS [Suspect]
     Active Substance: ASPIRIN\CAFFEINE
     Indication: Headache
     Dosage: UP TO 6 A DAY
     Route: 048
  2. BC (ASPIRIN\CAFFEINE) [Suspect]
     Active Substance: ASPIRIN\CAFFEINE
     Indication: Headache
     Dosage: UP TO 6 A DAY
     Route: 048

REACTIONS (4)
  - Chronic kidney disease [Not Recovered/Not Resolved]
  - Feeling abnormal [Unknown]
  - Nausea [Unknown]
  - Intentional product misuse [None]
